FAERS Safety Report 8811800 (Version 1)
Quarter: 2012Q4

REPORT INFORMATION
  Report Type: 
  Country: US (occurrence: US)
  Receive Date: 20120927
  Receipt Date: 20120927
  Transmission Date: 20130627
  Serious: Yes (Hospitalization)
  Sender: FDA-Public Use
  Company Number: US-GLAXOSMITHKLINE-A0815575A

PATIENT
  Sex: Male
  Weight: 162.3 kg

DRUGS (6)
  1. AVANDIA [Suspect]
     Indication: DIABETES MELLITUS
     Dosage: 8MG Per day
     Route: 048
     Dates: start: 20061025, end: 20090304
  2. GABAPENTIN [Concomitant]
  3. LISINOPRIL [Concomitant]
  4. BUPROPION [Concomitant]
  5. SIMVASTATIN [Concomitant]
  6. SERTRALINE [Concomitant]

REACTIONS (3)
  - Cardiac failure congestive [Unknown]
  - Angina pectoris [Unknown]
  - Coronary artery disease [Unknown]
